FAERS Safety Report 18264022 (Version 11)
Quarter: 2021Q4

REPORT INFORMATION
  Report Type: Report from Study
  Country: US (occurrence: US)
  Receive Date: 20200914
  Receipt Date: 20211019
  Transmission Date: 20220303
  Serious: Yes (Other)
  Sender: FDA-Public Use
  Company Number: US-NOVARTISPH-NVSC2020US250484

PATIENT
  Age: 2 Month
  Sex: Male

DRUGS (2)
  1. ZOLGENSMA [Suspect]
     Active Substance: ONASEMNOGENE ABEPARVOVEC-XIOI
     Indication: Spinal muscular atrophy
     Dosage: UNK, ONCE/SINGLE
     Route: 042
     Dates: start: 20200909, end: 20200909
  2. ZOLGENSMA [Suspect]
     Active Substance: ONASEMNOGENE ABEPARVOVEC-XIOI
     Dosage: UNK, ONCE/SINGLE (ONE SINGLE DOSE)
     Route: 042
     Dates: start: 202009

REACTIONS (13)
  - Choking [Recovered/Resolved]
  - Aspartate aminotransferase increased [Recovering/Resolving]
  - Alanine aminotransferase increased [Recovering/Resolving]
  - Weight decreased [Unknown]
  - Irritability [Recovered/Resolved]
  - Sleep disorder [Recovered/Resolved]
  - Insomnia [Unknown]
  - Flatulence [Unknown]
  - Pallor [Unknown]
  - Abnormal faeces [Unknown]
  - Productive cough [Unknown]
  - Diarrhoea [Unknown]
  - Vomiting [Recovered/Resolved]

NARRATIVE: CASE EVENT DATE: 20201021
